FAERS Safety Report 25598775 (Version 1)
Quarter: 2025Q3

REPORT INFORMATION
  Report Type: Other
  Country: CN (occurrence: CN)
  Receive Date: 20250724
  Receipt Date: 20250724
  Transmission Date: 20251021
  Serious: Yes (Other)
  Sender: QILU PHARMACEUTICAL
  Company Number: CN-QILU PHARMACEUTICAL CO.LTD.-QLU-000162-2025

PATIENT
  Age: 79 Year
  Sex: Male
  Weight: 55 kg

DRUGS (8)
  1. OLANZAPINE [Suspect]
     Active Substance: OLANZAPINE
     Indication: Mental disorder
     Dosage: 2.5 MG ONCE EVERY NIGHT
     Route: 048
     Dates: start: 20250630
  2. Shengxue Ning [Concomitant]
     Indication: Anaemia
     Route: 048
     Dates: start: 20250630, end: 20250716
  3. FLUNARIZINE HYDROCHLORIDE [Concomitant]
     Active Substance: FLUNARIZINE HYDROCHLORIDE
     Dosage: 5 MG ONCE EVERY NIGHT
     Route: 048
     Dates: start: 20250630, end: 20250716
  4. AMBROXOL HYDROCHLORIDE [Concomitant]
     Active Substance: AMBROXOL HYDROCHLORIDE
     Indication: Productive cough
     Dosage: 10 ML TWICE DAILY
     Route: 048
     Dates: start: 20250630, end: 20250716
  5. Nao xin tong [Concomitant]
     Indication: Cerebral vasodilatation
     Dosage: 1.2 G DAILY
     Route: 048
     Dates: start: 20250630, end: 20250716
  6. THEOPHYLLINE [Concomitant]
     Active Substance: THEOPHYLLINE
     Dosage: 0.1 G TWICE DAILY
     Route: 048
     Dates: start: 20250630, end: 20250716
  7. METOPROLOL TARTRATE [Concomitant]
     Active Substance: METOPROLOL TARTRATE
     Dosage: 12.5 MG TWICE DAILY
     Route: 048
     Dates: start: 20250630, end: 20250716
  8. ATORVASTATIN CALCIUM [Concomitant]
     Active Substance: ATORVASTATIN CALCIUM
     Dosage: 10 MG DAILY
     Route: 048
     Dates: start: 20250630, end: 20250716

REACTIONS (1)
  - Hypokalaemia [Recovered/Resolved]

NARRATIVE: CASE EVENT DATE: 20250701
